FAERS Safety Report 13125718 (Version 1)
Quarter: 2017Q1

REPORT INFORMATION
  Report Type: Report from Study
  Country: US (occurrence: US)
  Receive Date: 20170118
  Receipt Date: 20170118
  Transmission Date: 20170428
  Serious: Yes (Life-Threatening, Hospitalization)
  Sender: FDA-Public Use
  Company Number: US-VIIV HEALTHCARE LIMITED-US2017004783

PATIENT
  Sex: Female

DRUGS (4)
  1. PYRIDOXINE [Suspect]
     Active Substance: PYRIDOXINE
     Indication: DRUG LEVEL
     Dosage: 50 MG, WE
     Route: 048
     Dates: start: 20161206
  2. DOLUTEGRAVIR [Suspect]
     Active Substance: DOLUTEGRAVIR
     Indication: DRUG LEVEL
     Dosage: 50 MG, QD
     Route: 048
     Dates: start: 20161202
  3. ISONIAZID. [Suspect]
     Active Substance: ISONIAZID
     Indication: DRUG LEVEL
     Dosage: 900 MG, WE
     Route: 048
     Dates: start: 20161206
  4. RIFAPENTINE [Suspect]
     Active Substance: RIFAPENTINE
     Indication: DRUG LEVEL
     Dosage: 900 MG, WE
     Route: 048
     Dates: start: 20161206

REACTIONS (3)
  - Alanine aminotransferase increased [Recovering/Resolving]
  - Aspartate aminotransferase increased [Recovering/Resolving]
  - Presyncope [Recovered/Resolved]

NARRATIVE: CASE EVENT DATE: 20161220
